FAERS Safety Report 6199887-4 (Version None)
Quarter: 2009Q2

REPORT INFORMATION
  Report Type: 
  Country: None (occurrence: None)
  Receive Date: 20090518
  Receipt Date: 20090126
  Transmission Date: 20091009
  Serious: No
  Sender: FDA-Public Use
  Company Number: WAES 0812USA00297

PATIENT
  Age: 62 Year
  Sex: Female
  Weight: 83.0083 kg

DRUGS (1)
  1. JANUVIA [Suspect]
     Indication: DIABETES MELLITUS
     Dosage: 100 MG/ DAILY/ PO
     Route: 048

REACTIONS (2)
  - DYSPEPSIA [None]
  - NAUSEA [None]
